FAERS Safety Report 6221504-5 (Version None)
Quarter: 2009Q2

REPORT INFORMATION
  Report Type: 
  Country: None (occurrence: None)
  Receive Date: 20090610
  Receipt Date: 20090526
  Transmission Date: 20091009
  Serious: Yes (Other)
  Sender: FDA-Public Use
  Company Number: PHHY2009FR20304

PATIENT
  Sex: Female

DRUGS (10)
  1. SIMULECT [Suspect]
     Indication: RENAL TRANSPLANT
     Dosage: UNK
     Dates: start: 20021101
  2. CORTICOSTEROIDS [Suspect]
     Indication: RENAL TRANSPLANT
     Dosage: UNK
     Dates: end: 20000601
  3. CORTICOSTEROIDS [Suspect]
     Indication: IMMUNOSUPPRESSION
     Dosage: UNK
     Dates: start: 20021101
  4. CORTICOSTEROIDS [Suspect]
     Dosage: 10 MG/DAY
  5. AZATHIOPRINE [Suspect]
     Indication: RENAL TRANSPLANT
     Dosage: UNK
     Dates: end: 20000601
  6. AZATHIOPRINE [Suspect]
     Indication: IMMUNOSUPPRESSION
     Dosage: UNK
     Dates: start: 20021101
  7. TACROLIMUS [Suspect]
     Indication: RENAL TRANSPLANT
     Dates: start: 20021101
  8. TACROLIMUS [Suspect]
     Dosage: 1 MG, BID
  9. MYCOPHENOLATE MOFETIL [Suspect]
     Indication: RENAL TRANSPLANT
     Dosage: UNK
     Dates: start: 20021101, end: 20021101
  10. MYCOPHENOLATE MOFETIL [Suspect]
     Indication: IMMUNOSUPPRESSION
     Dosage: 500 MG, BID

REACTIONS (6)
  - ABDOMINAL PAIN [None]
  - HYPERTENSION [None]
  - RENAL GRAFT LOSS [None]
  - THROMBOTIC MICROANGIOPATHY [None]
  - TRANSPLANT REJECTION [None]
  - VOMITING [None]
